FAERS Safety Report 7210845-0 (Version None)
Quarter: 2010Q4

REPORT INFORMATION
  Report Type: 
  Country: None (occurrence: None)
  Receive Date: 20101227
  Receipt Date: 20101209
  Transmission Date: 20110411
  Serious: Yes (Hospitalization)
  Sender: FDA-Public Use
  Company Number: 2010005071

PATIENT
  Age: 69 Year
  Sex: Male

DRUGS (10)
  1. ERLOTINIB HYDROCHLORIDE [Suspect]
     Indication: HEPATIC NEOPLASM MALIGNANT
     Dosage: (150 MG, QD), ORAL, (100 MG,QD), ORAL, (100 MG,QD), ORAL, (50 MG, QD), ORAL
     Route: 048
     Dates: start: 20100222, end: 20100315
  2. ERLOTINIB HYDROCHLORIDE [Suspect]
     Indication: HEPATIC NEOPLASM MALIGNANT
     Dosage: (150 MG, QD), ORAL, (100 MG,QD), ORAL, (100 MG,QD), ORAL, (50 MG, QD), ORAL
     Route: 048
     Dates: start: 20100323, end: 20100504
  3. ERLOTINIB HYDROCHLORIDE [Suspect]
     Indication: HEPATIC NEOPLASM MALIGNANT
     Dosage: (150 MG, QD), ORAL, (100 MG,QD), ORAL, (100 MG,QD), ORAL, (50 MG, QD), ORAL
     Route: 048
     Dates: start: 20100519, end: 20100628
  4. ERLOTINIB HYDROCHLORIDE [Suspect]
     Indication: HEPATIC NEOPLASM MALIGNANT
     Dosage: (150 MG, QD), ORAL, (100 MG,QD), ORAL, (100 MG,QD), ORAL, (50 MG, QD), ORAL
     Route: 048
     Dates: start: 20100714, end: 20100811
  5. SORAFENIB (TABLET) [Suspect]
     Indication: HEPATIC NEOPLASM MALIGNANT
     Dosage: (400 MG, BID), ORAL, (400 MG, BID), ORAL, (400 MG, OD), ORAL, (400 MG, OD), ORAL
     Route: 048
     Dates: start: 20100222, end: 20100315
  6. SORAFENIB (TABLET) [Suspect]
     Indication: HEPATIC NEOPLASM MALIGNANT
     Dosage: (400 MG, BID), ORAL, (400 MG, BID), ORAL, (400 MG, OD), ORAL, (400 MG, OD), ORAL
     Route: 048
     Dates: start: 20100323, end: 20100505
  7. SORAFENIB (TABLET) [Suspect]
     Indication: HEPATIC NEOPLASM MALIGNANT
     Dosage: (400 MG, BID), ORAL, (400 MG, BID), ORAL, (400 MG, OD), ORAL, (400 MG, OD), ORAL
     Route: 048
     Dates: start: 20100519, end: 20100628
  8. SORAFENIB (TABLET) [Suspect]
     Indication: HEPATIC NEOPLASM MALIGNANT
     Dosage: (400 MG, BID), ORAL, (400 MG, BID), ORAL, (400 MG, OD), ORAL, (400 MG, OD), ORAL
     Route: 048
     Dates: start: 20100714, end: 20101108
  9. FONDAPARIUX SODIUM [Concomitant]
  10. LOPERAMIDE [Concomitant]

REACTIONS (1)
  - HAEMOTHORAX [None]
